FAERS Safety Report 4831456-8 (Version None)
Quarter: 2005Q4

REPORT INFORMATION
  Report Type: 
  Country: None (occurrence: None)
  Receive Date: 20051118
  Receipt Date: 20051109
  Transmission Date: 20060501
  Serious: Yes (Death)
  Sender: FDA-Public Use
  Company Number: GB-ABBOTT-05P-167-0316981-00

PATIENT
  Sex: Female
  Weight: 50 kg

DRUGS (4)
  1. HUMIRA [Suspect]
     Indication: RHEUMATOID ARTHRITIS
     Route: 058
     Dates: start: 20041115
  2. AZATHIOPRINE [Concomitant]
     Indication: DRUG USE FOR UNKNOWN INDICATION
  3. PREDNISOLONE [Concomitant]
     Indication: DRUG USE FOR UNKNOWN INDICATION
  4. ACETAMINOPHEN W/ PROPOXYPHENE HCL [Concomitant]
     Indication: DRUG USE FOR UNKNOWN INDICATION

REACTIONS (1)
  - DEATH [None]
